FAERS Safety Report 23759536 (Version 1)
Quarter: 2024Q2

REPORT INFORMATION
  Report Type: Spontaneous
  Country: US (occurrence: None)
  Receive Date: 20240418
  Receipt Date: 20240418
  Transmission Date: 20240716
  Serious: No
  Sender: FDA-Public Use
  Company Number: US-ROCHE-3327664

PATIENT
  Sex: Female
  Weight: 89.892 kg

DRUGS (1)
  1. PIRFENIDONE [Suspect]
     Active Substance: PIRFENIDONE
     Indication: Idiopathic pulmonary fibrosis
     Dosage: 267MG FIRST 7 DAYS IT WAS ONE WITH EVERY MEAL. 2ND DAY TAKING 2, I JUST TOOK 2 AT BREAKFAST
     Route: 048
     Dates: start: 20230330

REACTIONS (1)
  - Muscle strain [Unknown]
